FAERS Safety Report 8267460-X (Version None)
Quarter: 2012Q2

REPORT INFORMATION
  Report Type: 
  Country: None (occurrence: None)
  Receive Date: 20120405
  Receipt Date: 20120405
  Transmission Date: 20120825
  Serious: Yes (Hospitalization)
  Sender: FDA-Public Use
  Company Number: None

PATIENT
  Age: 46 Year
  Sex: Male
  Weight: 86.5 kg

DRUGS (6)
  1. METOPROLOL TARTRATE [Concomitant]
  2. ASPIRIN [Suspect]
     Indication: CORONARY ARTERY DISEASE
     Dosage: 81 MG BID PO RECENT
     Route: 048
  3. LIPITOR [Concomitant]
  4. EFFIENT [Suspect]
     Indication: CORONARY ARTERY DISEASE
     Dosage: 10 MG DAILY PO RECENT
  5. VIT C [Concomitant]
  6. VIT B COMPLEX [Concomitant]

REACTIONS (4)
  - VOMITING [None]
  - HAEMORRHAGIC ANAEMIA [None]
  - HAEMORRHOIDS [None]
  - NAUSEA [None]
